FAERS Safety Report 12748632 (Version 1)
Quarter: 2016Q3

REPORT INFORMATION
  Report Type: Spontaneous
  Country: SE (occurrence: SE)
  Receive Date: 20160915
  Receipt Date: 20160915
  Transmission Date: 20161109
  Serious: Yes (Hospitalization, Other)
  Sender: FDA-Public Use
  Company Number: SE-GLAXOSMITHKLINE-SE2016GSK134483

PATIENT
  Age: 36 Year
  Sex: Male

DRUGS (4)
  1. LAXOBERAL [Concomitant]
     Active Substance: SODIUM PICOSULFATE
  2. VOLTAREN [Suspect]
     Active Substance: DICLOFENAC SODIUM
     Indication: BACK PAIN
     Dosage: 6 DF, QD
     Route: 048
     Dates: start: 201607, end: 201607
  3. TRAMADOL. [Concomitant]
     Active Substance: TRAMADOL
  4. ALVEDON [Concomitant]
     Active Substance: ACETAMINOPHEN

REACTIONS (2)
  - Polyuria [Unknown]
  - Renal tubular necrosis [Unknown]

NARRATIVE: CASE EVENT DATE: 201607
